FAERS Safety Report 8652213 (Version 13)
Quarter: 2015Q1

REPORT INFORMATION
  Report Type: Report from Study
  Country: TR (occurrence: TR)
  Receive Date: 20120706
  Receipt Date: 20150313
  Transmission Date: 20150721
  Serious: Yes (Hospitalization)
  Sender: FDA-Public Use
  Company Number: PHHY2012TR057756

PATIENT
  Age: 56 Year
  Sex: Male

DRUGS (7)
  1. TASIGNA [Suspect]
     Active Substance: NILOTINIB
     Dosage: 400 MG, QD
     Route: 048
  2. TASIGNA [Suspect]
     Active Substance: NILOTINIB
     Dosage: 800 MG, QD
     Route: 048
     Dates: end: 20150128
  3. TASIGNA [Suspect]
     Active Substance: NILOTINIB
     Dosage: 800 MG, QD
     Route: 048
  4. TASIGNA [Suspect]
     Active Substance: NILOTINIB
     Dosage: UNK
     Route: 048
     Dates: end: 20150128
  5. TASIGNA [Suspect]
     Active Substance: NILOTINIB
     Dosage: 600 MG, (2 IN THE MIDDAY, 1 IN THE EVENING)
     Route: 048
  6. TASIGNA [Suspect]
     Active Substance: NILOTINIB
     Dosage: 2 DF, BID
     Route: 048
  7. TASIGNA [Suspect]
     Active Substance: NILOTINIB
     Indication: CHRONIC MYELOID LEUKAEMIA
     Dosage: 800 MG, QD (2 IN THE MORNING AND 2 IN THE EVENING)
     Route: 048
     Dates: start: 20120514

REACTIONS (12)
  - Gait disturbance [Recovering/Resolving]
  - Blood glucose increased [Recovering/Resolving]
  - Stress [Recovered/Resolved]
  - Coronary artery occlusion [Not Recovered/Not Resolved]
  - Malaise [Recovering/Resolving]
  - Incorrect dose administered [Unknown]
  - Internal haemorrhage [Recovered/Resolved]
  - Mental disorder [Unknown]
  - Personality disorder [Not Recovered/Not Resolved]
  - Nausea [Not Recovered/Not Resolved]
  - Drug ineffective [Unknown]
  - Myocardial infarction [Recovered/Resolved]

NARRATIVE: CASE EVENT DATE: 2012
